FAERS Safety Report 11232061 (Version 2)
Quarter: 2015Q3

REPORT INFORMATION
  Report Type: Spontaneous
  Country: CH (occurrence: DE)
  Receive Date: 20150701
  Receipt Date: 20150724
  Transmission Date: 20151125
  Serious: Yes (Other)
  Sender: FDA-Public Use
  Company Number: CH-LPDUSPRD-20150496

PATIENT
  Sex: Female

DRUGS (1)
  1. FERINJECT [Suspect]
     Active Substance: FERRIC CARBOXYMALTOSE
     Dosage: 500 MG DILUTED IN 500 MG NACL
     Route: 041
     Dates: start: 20150520, end: 20150520

REACTIONS (13)
  - Headache [Unknown]
  - Tachycardia [Unknown]
  - Hypotension [Unknown]
  - Urticaria [Unknown]
  - Hypertension [Unknown]
  - Flushing [Unknown]
  - Acne [Unknown]
  - Dyspnoea [Unknown]
  - Erythema [Unknown]
  - Conjunctivitis [Unknown]
  - Pruritus [Unknown]
  - Dizziness [Unknown]
  - Wrong technique in product usage process [Unknown]

NARRATIVE: CASE EVENT DATE: 20150520
